FAERS Safety Report 24222872 (Version 1)
Quarter: 2024Q3

REPORT INFORMATION
  Report Type: Spontaneous
  Country: HN (occurrence: HN)
  Receive Date: 20240819
  Receipt Date: 20240819
  Transmission Date: 20241017
  Serious: Yes (Death)
  Sender: PFIZER
  Company Number: HN-PFIZER INC-202400237647

PATIENT
  Sex: Female

DRUGS (2)
  1. BRAFTOVI [Suspect]
     Active Substance: ENCORAFENIB
     Indication: Malignant melanoma
  2. MEKTOVI [Suspect]
     Active Substance: BINIMETINIB

REACTIONS (1)
  - Cerebrovascular accident [Fatal]
